FAERS Safety Report 6133904-2 (Version None)
Quarter: 2009Q1

REPORT INFORMATION
  Report Type: 
  Country: None (occurrence: None)
  Receive Date: 20090326
  Receipt Date: 20090316
  Transmission Date: 20090719
  Serious: Yes (Other)
  Sender: FDA-Public Use
  Company Number: ES-ELI_LILLY_AND_COMPANY-ES200902000309

PATIENT
  Age: 42 Year
  Sex: Male

DRUGS (3)
  1. CYMBALTA [Suspect]
     Indication: DEPRESSION
     Dosage: 30 MG, UNK
     Route: 048
     Dates: start: 20081101
  2. CYMBALTA [Suspect]
     Dosage: 60 MG, UNKNOWN
     Route: 048
     Dates: start: 20081201
  3. TRANKIMAZIN [Concomitant]
     Indication: DEPRESSION
     Dosage: 0.5 MG, UNKNOWN
     Route: 048
     Dates: start: 20081201, end: 20090204

REACTIONS (4)
  - ASTHENIA [None]
  - JAUNDICE [None]
  - RECTAL HAEMORRHAGE [None]
  - WEIGHT DECREASED [None]
